FAERS Safety Report 10583606 (Version 1)
Quarter: 2014Q4

REPORT INFORMATION
  Report Type: Spontaneous
  Country: US (occurrence: None)
  Receive Date: 20141112
  Receipt Date: 20141112
  Transmission Date: 20150529
  Serious: Yes (Other)
  Sender: FDA-Public Use
  Company Number: VAL_03520_2014

PATIENT
  Sex: Male

DRUGS (11)
  1. EPOETIN BETA [Concomitant]
     Active Substance: ERYTHROPOIETIN
  2. MUPIROCIN. [Concomitant]
     Active Substance: MUPIROCIN
  3. CALCIUM ANTACID [Concomitant]
     Active Substance: CALCIUM CARBONATE
  4. HEPARIN [Concomitant]
     Active Substance: HEPARIN SODIUM
  5. FERROUS SULFATE [Concomitant]
     Active Substance: FERROUS SULFATE\FERROUS SULFATE, DRIED
  6. DIANEAL PD-2 PERITONEAL DIALYSIS SOLUTION WITH DEXTROSE [Concomitant]
     Active Substance: CALCIUM CHLORIDE\DEXTROSE\MAGNESIUM CHLORIDE\SODIUM CHLORIDE\SODIUM LACTATE
  7. CALCIUM ACETATE. [Concomitant]
     Active Substance: CALCIUM ACETATE
  8. SODIUM CARBONATE [Concomitant]
     Active Substance: SODIUM CARBONATE
  9. CALCITRIOL. [Suspect]
     Active Substance: CALCITRIOL
     Indication: PRODUCT USED FOR UNKNOWN INDICATION
     Route: 048
  10. NITROFURANTOIN. [Concomitant]
     Active Substance: NITROFURANTOIN
  11. LISINOPRIL. [Concomitant]
     Active Substance: LISINOPRIL

REACTIONS (4)
  - Drug ineffective [None]
  - Cardiovascular disorder [None]
  - Oedema [None]
  - Rash [None]
